FAERS Safety Report 9548174 (Version 1)
Quarter: 2013Q3

REPORT INFORMATION
  Report Type: Spontaneous
  Country: US (occurrence: None)
  Receive Date: 20130710
  Receipt Date: 20130710
  Transmission Date: 20140515
  Serious: Yes (Other)
  Sender: FDA-Public Use
  Company Number: US-ME-2012P1056306

PATIENT
  Age: 40 Year
  Sex: Female
  Weight: 56.7 kg

DRUGS (1)
  1. SOLODYN ER [Suspect]
     Indication: ACNE
     Dosage: 1 IN 1 D, ORAL
     Route: 048
     Dates: start: 20120106, end: 201207

REACTIONS (12)
  - Asthma [None]
  - Palpitations [None]
  - Mitral valve prolapse [None]
  - Mitral valve disease [None]
  - Tricuspid valve incompetence [None]
  - Lung neoplasm [None]
  - Goitre [None]
  - Fatigue [None]
  - Pain [None]
  - Arthralgia [None]
  - Alanine aminotransferase increased [None]
  - Aspartate aminotransferase increased [None]
